FAERS Safety Report 8094223-0 (Version None)
Quarter: 2012Q1

REPORT INFORMATION
  Report Type: 
  Country: None (occurrence: None)
  Receive Date: 20120131
  Receipt Date: 20120123
  Transmission Date: 20120608
  Serious: No
  Sender: FDA-Public Use
  Company Number: US-JNJFOC-20120102033

PATIENT
  Sex: Male
  Weight: 87.09 kg

DRUGS (4)
  1. INVEGA SUSTENNA [Suspect]
     Indication: SCHIZOPHRENIA
     Route: 030
     Dates: start: 20110906
  2. INVEGA [Concomitant]
     Indication: SCHIZOPHRENIA
     Route: 030
  3. WELLBUTRIN XL [Concomitant]
     Route: 048
  4. INVEGA SUSTENNA [Suspect]
     Route: 030
     Dates: start: 20110101

REACTIONS (2)
  - ACCIDENTAL EXPOSURE [None]
  - DEVICE LEAKAGE [None]
